FAERS Safety Report 8728313 (Version 2)
Quarter: 2012Q4

REPORT INFORMATION
  Report Type: 
  Country: US (occurrence: US)
  Receive Date: 20120817
  Receipt Date: 20120907
  Transmission Date: 20130627
  Serious: Yes (Other)
  Sender: FDA-Public Use
  Company Number: US-BAYER-2012-082149

PATIENT
  Age: 37 Year
  Sex: Female
  Weight: 101.59 kg

DRUGS (9)
  1. YAZ [Suspect]
     Indication: UTERINE HAEMORRHAGE
     Dosage: UNK
     Dates: start: 201007, end: 20100830
  2. ADVIL [Concomitant]
     Dosage: UNK
     Dates: start: 20100825
  3. ZYRTEC [Concomitant]
     Dosage: UNK
     Dates: start: 20100720
  4. CLARITIN [Concomitant]
     Dosage: UNK
     Dates: start: 20100720
  5. NORCO [Concomitant]
     Indication: PAIN
     Dosage: UNK
     Dates: start: 20100827
  6. MEDROL [METHYLPREDNISOLONE] [Concomitant]
     Dosage: UNK
     Dates: start: 20100827
  7. MOTRIN [Concomitant]
  8. TYLENOL [Concomitant]
     Indication: PAIN
  9. IBUPROFEN [Concomitant]
     Indication: PAIN

REACTIONS (1)
  - Deep vein thrombosis [None]
